FAERS Safety Report 8437064-4 (Version None)
Quarter: 2012Q2

REPORT INFORMATION
  Report Type: 
  Country: None (occurrence: None)
  Receive Date: 20120614
  Receipt Date: 20120611
  Transmission Date: 20120825
  Serious: Yes (Death)
  Sender: FDA-Public Use
  Company Number: AT-ABBOTT-12P-009-0944338-00

PATIENT
  Age: 73 Year
  Sex: Female
  Weight: 78 kg

DRUGS (3)
  1. ZEMPLAR [Suspect]
     Dosage: 10MCG/WEEK
     Route: 051
     Dates: start: 20120229
  2. ZEMPLAR [Suspect]
     Indication: PRODUCT USED FOR UNKNOWN INDICATION
     Dosage: 15MCG/WEEK
     Route: 051
     Dates: start: 20120106, end: 20120229
  3. NEXIUM [Concomitant]
     Indication: PRODUCT USED FOR UNKNOWN INDICATION
     Dosage: 280MG/WEEK
     Route: 048
     Dates: start: 20120116

REACTIONS (1)
  - CARDIAC ARREST [None]
